FAERS Safety Report 9496192 (Version 3)
Quarter: 2013Q4

REPORT INFORMATION
  Report Type: Spontaneous
  Country: DE (occurrence: DE)
  Receive Date: 20130904
  Receipt Date: 20131111
  Transmission Date: 20140711
  Serious: Yes (Death, Other)
  Sender: FDA-Public Use
  Company Number: DE-BRISTOL-MYERS SQUIBB COMPANY-19204569

PATIENT
  Age: 8 Decade
  Sex: Male
  Weight: 70 kg

DRUGS (1)
  1. ONGLYZA TABS 5 MG [Suspect]
     Indication: DIABETES MELLITUS
     Dates: start: 20110517

REACTIONS (3)
  - Sepsis [Fatal]
  - Constipation [Unknown]
  - Enteritis [Unknown]
